FAERS Safety Report 11546715 (Version 1)
Quarter: 2015Q3

REPORT INFORMATION
  Report Type: Spontaneous
  Country: US (occurrence: US)
  Receive Date: 20150924
  Receipt Date: 20150924
  Transmission Date: 20151125
  Serious: No
  Sender: FDA-Public Use
  Company Number: PHEH2015US018772

PATIENT
  Sex: Female

DRUGS (6)
  1. RECLAST [Suspect]
     Active Substance: ZOLEDRONIC ACID
     Dosage: 5 MG PER 100 ML YEARLY
     Route: 042
     Dates: start: 20140417
  2. RECLAST [Suspect]
     Active Substance: ZOLEDRONIC ACID
     Indication: OSTEOPOROSIS
     Dosage: 5 MG PER 100 ML YEARLY
     Route: 042
     Dates: start: 20110113
  3. RECLAST [Suspect]
     Active Substance: ZOLEDRONIC ACID
     Dosage: 5 MG PER 100 ML YEARLY
     Route: 042
     Dates: start: 20120221
  4. RECLAST [Suspect]
     Active Substance: ZOLEDRONIC ACID
     Dosage: 5 MG PER 100 ML YEARLY
     Route: 042
     Dates: start: 20130416
  5. RECLAST [Suspect]
     Active Substance: ZOLEDRONIC ACID
     Dosage: 5 MG PER 100 ML YEARLY
     Route: 042
     Dates: start: 20150420
  6. LOVASTATIN. [Concomitant]
     Active Substance: LOVASTATIN
     Indication: PRODUCT USED FOR UNKNOWN INDICATION
     Dosage: 10 MG, QD
     Route: 065

REACTIONS (4)
  - Pain [Unknown]
  - Pain in extremity [Unknown]
  - Sensory loss [Unknown]
  - Arthralgia [Unknown]
